FAERS Safety Report 11811000 (Version 3)
Quarter: 2015Q4

REPORT INFORMATION
  Report Type: Report from Study
  Country: US (occurrence: US)
  Receive Date: 20151208
  Receipt Date: 20151229
  Transmission Date: 20160305
  Serious: No
  Sender: FDA-Public Use
  Company Number: PHEH2015US025319

PATIENT
  Age: 66 Year
  Sex: Male
  Weight: 111.11 kg

DRUGS (1)
  1. GILENYA [Suspect]
     Active Substance: FINGOLIMOD HYDROCHLORIDE
     Indication: MULTIPLE SCLEROSIS
     Dosage: 0.5 MG, QD
     Route: 048
     Dates: start: 20111007

REACTIONS (6)
  - Disorientation [Unknown]
  - Cognitive disorder [Unknown]
  - Memory impairment [Unknown]
  - Road traffic accident [Unknown]
  - Concussion [Unknown]
  - Confusional state [Unknown]

NARRATIVE: CASE EVENT DATE: 20150104
